FAERS Safety Report 9760245 (Version 2)
Quarter: 2015Q3

REPORT INFORMATION
  Report Type: Spontaneous
  Country: US (occurrence: US)
  Receive Date: 20131216
  Receipt Date: 20150806
  Transmission Date: 20151125
  Serious: No
  Sender: FDA-Public Use
  Company Number: US-GILEAD-2010-0028403

PATIENT
  Age: 52 Year
  Sex: Male
  Weight: 108.86 kg

DRUGS (15)
  1. DIOVAN [Concomitant]
     Active Substance: VALSARTAN
  2. PRAVASTATIN [Concomitant]
     Active Substance: PRAVASTATIN\PRAVASTATIN SODIUM
  3. CARVEDILOL. [Concomitant]
     Active Substance: CARVEDILOL
  4. KEFLEX [Concomitant]
     Active Substance: CEPHALEXIN
  5. COLCHICINE. [Concomitant]
     Active Substance: COLCHICINE
  6. ALLOPURINOL. [Concomitant]
     Active Substance: ALLOPURINOL
  7. ZOLPIDEM [Concomitant]
     Active Substance: ZOLPIDEM\ZOLPIDEM TARTRATE
  8. VIAGRA [Concomitant]
     Active Substance: SILDENAFIL CITRATE
  9. TEKTURNA [Concomitant]
     Active Substance: ALISKIREN HEMIFUMARATE
  10. ASPIRIN. [Concomitant]
     Active Substance: ASPIRIN
  11. LETAIRIS [Suspect]
     Active Substance: AMBRISENTAN
     Indication: PULMONARY ARTERIAL HYPERTENSION
     Route: 048
     Dates: start: 20100216
  12. FUROSEMIDE. [Concomitant]
     Active Substance: FUROSEMIDE
  13. AMIODARONE [Concomitant]
     Active Substance: AMIODARONE
  14. FLUOXETINE [Concomitant]
     Active Substance: FLUOXETINE\FLUOXETINE HYDROCHLORIDE
  15. POTASSIUM CHLORIDE. [Concomitant]
     Active Substance: POTASSIUM CHLORIDE

REACTIONS (2)
  - Pigmentation disorder [Unknown]
  - Nasal congestion [Unknown]
